FAERS Safety Report 8450412-4 (Version None)
Quarter: 2012Q2

REPORT INFORMATION
  Report Type: 
  Country: None (occurrence: None)
  Receive Date: 20120620
  Receipt Date: 20120611
  Transmission Date: 20120825
  Serious: Yes (Other)
  Sender: FDA-Public Use
  Company Number: PL-SANOFI-AVENTIS-2012SA018462

PATIENT
  Age: 71 Year
  Sex: Male

DRUGS (3)
  1. MULTAQ [Suspect]
     Indication: ATRIAL FIBRILLATION
     Route: 048
     Dates: start: 20110801
  2. ALLOPURINOL [Concomitant]
     Route: 048
  3. ACENOCOUMAROL [Concomitant]
     Route: 048

REACTIONS (2)
  - UNDERDOSE [None]
  - BLOOD CREATININE INCREASED [None]
